FAERS Safety Report 15696689 (Version 1)
Quarter: 2018Q4

REPORT INFORMATION
  Report Type: Spontaneous
  Country: US (occurrence: US)
  Receive Date: 20181206
  Receipt Date: 20181206
  Transmission Date: 20190205
  Serious: No
  Sender: FDA-Public Use
  Company Number: US-3M HEALTH CARE-TBWD-B5ZK5J

PATIENT

DRUGS (2)
  1. SOLUPREP [Suspect]
     Active Substance: CHLORHEXIDINE GLUCONATE\ISOPROPYL ALCOHOL
     Indication: PREOPERATIVE CARE
     Dosage: 10.5 ML MILLILITRE(S), SINGLE USE
     Route: 061
     Dates: start: 20181025, end: 20181026
  2. ALCOHOL. [Concomitant]
     Active Substance: ALCOHOL

REACTIONS (2)
  - Erythema [Recovered/Resolved]
  - Application site nodule [Recovered/Resolved]

NARRATIVE: CASE EVENT DATE: 20181026
